FAERS Safety Report 24186805 (Version 1)
Quarter: 2024Q3

REPORT INFORMATION
  Report Type: Report from Study
  Country: US (occurrence: US)
  Receive Date: 20240808
  Receipt Date: 20240808
  Transmission Date: 20241017
  Serious: Yes (Hospitalization)
  Sender: RECORDATI
  Company Number: US-RECORDATI RARE DISEASE INC.-2024005965

PATIENT

DRUGS (3)
  1. ISTURISA [Suspect]
     Active Substance: OSILODROSTAT PHOSPHATE
     Indication: Product used for unknown indication
     Dosage: 2 MG, BID (2 MG IN THE MORNING AND 2 MG IN THE EVENING)
     Dates: end: 20240712
  2. ISTURISA [Suspect]
     Active Substance: OSILODROSTAT PHOSPHATE
     Dosage: 1 MG, BID
     Dates: start: 202407, end: 202407
  3. ISTURISA [Suspect]
     Active Substance: OSILODROSTAT PHOSPHATE
     Dosage: 1 MG, QD (AT 3 PM)
     Dates: start: 202407

REACTIONS (5)
  - Cardiac failure congestive [Not Recovered/Not Resolved]
  - Blood potassium decreased [Unknown]
  - Illness [Unknown]
  - Muscle spasms [Unknown]
  - Off label use [Recovered/Resolved]

NARRATIVE: CASE EVENT DATE: 20240701
